FAERS Safety Report 19770346 (Version 3)
Quarter: 2022Q1

REPORT INFORMATION
  Report Type: Spontaneous
  Country: IT (occurrence: IT)
  Receive Date: 20210901
  Receipt Date: 20220112
  Transmission Date: 20220423
  Serious: Yes (Death, Hospitalization, Other)
  Sender: FDA-Public Use
  Company Number: NVSC2021IT182620

PATIENT
  Age: 39 Year
  Sex: Female
  Weight: 48 kg

DRUGS (4)
  1. RIBOCICLIB [Suspect]
     Active Substance: RIBOCICLIB
     Indication: Ovarian cancer
     Dosage: 600 MG
     Route: 048
     Dates: start: 20210802, end: 20210806
  2. IBUPROFEN [Suspect]
     Active Substance: IBUPROFEN
     Indication: Pain
     Dosage: UNK
     Route: 065
     Dates: start: 202107, end: 20210806
  3. FENTANYL [Concomitant]
     Active Substance: FENTANYL
     Indication: Pain
     Dosage: 12.5 MG
     Route: 065
     Dates: start: 20210802
  4. LANSOPRAZOLE [Concomitant]
     Active Substance: LANSOPRAZOLE
     Indication: Prophylaxis
     Dosage: 30 MG
     Route: 065
     Dates: start: 202105

REACTIONS (6)
  - Death [Fatal]
  - Haematemesis [Unknown]
  - Anaemia [Unknown]
  - Multiple organ dysfunction syndrome [Unknown]
  - Disease progression [Unknown]
  - Drug ineffective [Unknown]

NARRATIVE: CASE EVENT DATE: 20210806
